FAERS Safety Report 9821826 (Version 1)
Quarter: 2014Q1

REPORT INFORMATION
  Report Type: Spontaneous
  Country: US (occurrence: None)
  Receive Date: 20140114
  Receipt Date: 20140114
  Transmission Date: 20141002
  Serious: Yes (Hospitalization, Other)
  Sender: FDA-Public Use
  Company Number: AUR-APL-2014-00245

PATIENT
  Age: 49 Year
  Sex: Female

DRUGS (1)
  1. METFORMIN (METFORMIN) [Suspect]
     Indication: DIABETES MELLITUS

REACTIONS (17)
  - Lethargy [None]
  - Mental status changes [None]
  - Nausea [None]
  - Vomiting [None]
  - Tachycardia [None]
  - Hypotension [None]
  - Blood glucose decreased [None]
  - Pulseless electrical activity [None]
  - White blood cell count increased [None]
  - Blood creatinine increased [None]
  - Shock [None]
  - Haemodialysis [None]
  - Blood bicarbonate decreased [None]
  - Hypothermia [None]
  - Tachypnoea [None]
  - Lactic acidosis [None]
  - Anion gap increased [None]
